FAERS Safety Report 19418398 (Version 2)
Quarter: 2021Q3

REPORT INFORMATION
  Report Type: Spontaneous
  Country: US (occurrence: US)
  Receive Date: 20210615
  Receipt Date: 20210913
  Transmission Date: 20211014
  Serious: No
  Sender: FDA-Public Use
  Company Number: US-GLOBAL BLOOD THERAPEUTICS INC-US-GBT-21-01217

PATIENT
  Age: 36 Year
  Sex: Male

DRUGS (2)
  1. OXBRYTA [Suspect]
     Active Substance: VOXELOTOR
     Route: 048
  2. OXBRYTA [Suspect]
     Active Substance: VOXELOTOR
     Indication: SICKLE CELL ANAEMIA WITH CRISIS
     Route: 048
     Dates: start: 20210326

REACTIONS (5)
  - Myalgia [Unknown]
  - Rash [Unknown]
  - Product dose omission issue [Unknown]
  - Decreased appetite [Unknown]
  - Product communication issue [Unknown]

NARRATIVE: CASE EVENT DATE: 2021
